FAERS Safety Report 18835098 (Version 1)
Quarter: 2021Q1

REPORT INFORMATION
  Report Type: Spontaneous
  Country: AU (occurrence: AU)
  Receive Date: 20210203
  Receipt Date: 20210203
  Transmission Date: 20210419
  Serious: Yes (Other)
  Sender: FDA-Public Use
  Company Number: AU-MYLANLABS-2021M1006612

PATIENT
  Sex: Male

DRUGS (6)
  1. CYPROTERONE/ETHINYLESTRADIOL [Suspect]
     Active Substance: CYPROTERONE ACETATE\ETHINYL ESTRADIOL
     Indication: HORMONE THERAPY
  2. ESTRADIOL. [Suspect]
     Active Substance: ESTRADIOL
     Indication: GENDER REASSIGNMENT THERAPY
     Dosage: 50 MICROGRAM, QH TWICE WEEKLY
     Route: 061
  3. CYPROTERONE [Suspect]
     Active Substance: CYPROTERONE
     Indication: GENDER REASSIGNMENT THERAPY
     Dosage: 50 MILLIGRAM, QD
     Route: 065
  4. ESTRADIOL. [Suspect]
     Active Substance: ESTRADIOL
     Indication: HORMONE THERAPY
  5. CYPROTERONE/ETHINYLESTRADIOL [Suspect]
     Active Substance: CYPROTERONE ACETATE\ETHINYL ESTRADIOL
     Indication: GENDER REASSIGNMENT THERAPY
     Dosage: UNK
     Route: 065
  6. CYPROTERONE [Suspect]
     Active Substance: CYPROTERONE
     Indication: HORMONE THERAPY

REACTIONS (2)
  - Prolactin-producing pituitary tumour [Unknown]
  - Hyperprolactinaemia [Recovered/Resolved]
